FAERS Safety Report 19509304 (Version 1)
Quarter: 2021Q3

REPORT INFORMATION
  Report Type: Spontaneous
  Country: US (occurrence: US)
  Receive Date: 20210709
  Receipt Date: 20210709
  Transmission Date: 20211014
  Serious: No
  Sender: FDA-Public Use
  Company Number: US-PRINSTON PHARMACEUTICAL INC.-2020PRN00392

PATIENT
  Sex: Male
  Weight: 83.92 kg

DRUGS (2)
  1. CRESTOR [Suspect]
     Active Substance: ROSUVASTATIN CALCIUM
     Dosage: UNK
  2. CLONAZEPAM. [Suspect]
     Active Substance: CLONAZEPAM
     Indication: ANXIETY
     Dosage: 0.25 MG, 1X/DAY
     Route: 048
     Dates: start: 202009, end: 202011

REACTIONS (2)
  - Migraine [Recovered/Resolved]
  - Reaction to excipient [Recovered/Resolved]

NARRATIVE: CASE EVENT DATE: 2020
